FAERS Safety Report 24127224 (Version 1)
Quarter: 2024Q3

REPORT INFORMATION
  Report Type: Spontaneous
  Country: FR (occurrence: FR)
  Receive Date: 20240723
  Receipt Date: 20240723
  Transmission Date: 20241017
  Serious: Yes (Other)
  Sender: PFIZER
  Company Number: FR-SEATTLE GENETICS-2021SGN04755

PATIENT
  Sex: Female

DRUGS (3)
  1. TUKYSA [Suspect]
     Active Substance: TUCATINIB
     Dosage: UNK
     Dates: start: 20210702
  2. TRASTUZUMAB [Suspect]
     Active Substance: TRASTUZUMAB
     Dosage: UNK
     Dates: start: 20210702
  3. CAPECITABINE [Suspect]
     Active Substance: CAPECITABINE
     Dosage: UNK
     Dates: start: 20210702

REACTIONS (1)
  - Aspartate aminotransferase increased [Unknown]
